FAERS Safety Report 8548451-8 (Version None)
Quarter: 2012Q3

REPORT INFORMATION
  Report Type: 
  Country: None (occurrence: None)
  Receive Date: 20120730
  Receipt Date: 20120718
  Transmission Date: 20120928
  Serious: Yes (Life-Threatening)
  Sender: FDA-Public Use
  Company Number: GB-ACCORD-014169

PATIENT
  Age: 52 Year
  Sex: Female

DRUGS (11)
  1. FERROUS FUMARATE [Concomitant]
  2. LEVOTHYROXINE SODIUM [Concomitant]
  3. LETROZOLE [Suspect]
     Indication: BREAST CANCER
     Route: 048
     Dates: start: 20120506, end: 20120516
  4. MOMETASONE FUROATE [Concomitant]
  5. THIAMINE [Concomitant]
  6. BECLOMETHASONE DIPROPIONATE [Concomitant]
  7. ALBUTEROL SULATE [Concomitant]
     Dosage: AS NECESSARY
  8. VITAMIN B COMPLEX CAP [Concomitant]
  9. DESLORATADINE [Concomitant]
  10. OMEPRAZOLE [Concomitant]
  11. LACTULOSE [Concomitant]

REACTIONS (2)
  - LIVER DISORDER [None]
  - JAUNDICE [None]
